FAERS Safety Report 5589717-3 (Version None)
Quarter: 2008Q1

REPORT INFORMATION
  Report Type: 
  Country: None (occurrence: None)
  Receive Date: 20080114
  Receipt Date: 20080104
  Transmission Date: 20080703
  Serious: Yes (Other)
  Sender: FDA-Public Use
  Company Number: B0501511A

PATIENT
  Age: 29 Year
  Sex: Female
  Weight: 48 kg

DRUGS (1)
  1. ALBENDAZOLE [Suspect]
     Indication: DRUG USE FOR UNKNOWN INDICATION
     Dosage: 2TABS PER DAY
     Route: 048
     Dates: start: 20071201, end: 20071201

REACTIONS (2)
  - ABORTION INDUCED [None]
  - DRUG EXPOSURE DURING PREGNANCY [None]
